FAERS Safety Report 11724093 (Version 1)
Quarter: 2015Q4

REPORT INFORMATION
  Report Type: Spontaneous
  Country: CA (occurrence: CA)
  Receive Date: 20151111
  Receipt Date: 20151111
  Transmission Date: 20160304
  Serious: Yes (Hospitalization)
  Sender: FDA-Public Use
  Company Number: CA-TEVA-607645ACC

PATIENT
  Age: 60 Year
  Sex: Female
  Weight: 50 kg

DRUGS (1)
  1. CLARITHROMYCIN. [Suspect]
     Active Substance: CLARITHROMYCIN
     Indication: PNEUMONIA
     Dosage: 1000 MILLIGRAM DAILY;
     Route: 048

REACTIONS (6)
  - Confusional state [Recovered/Resolved]
  - Neutrophil count increased [Recovered/Resolved]
  - Aggression [Recovered/Resolved]
  - Incoherent [Recovered/Resolved]
  - Abnormal behaviour [Recovered/Resolved]
  - Logorrhoea [Recovered/Resolved]
